FAERS Safety Report 5386616-7 (Version None)
Quarter: 2007Q3

REPORT INFORMATION
  Report Type: 
  Country: None (occurrence: None)
  Receive Date: 20070713
  Receipt Date: 20070705
  Transmission Date: 20080115
  Serious: Yes (Death)
  Sender: FDA-Public Use
  Company Number: CA-ELI_LILLY_AND_COMPANY-CA200707001767

PATIENT
  Sex: Female

DRUGS (2)
  1. XIGRIS [Suspect]
     Dosage: 5 MG, UNK
     Route: 042
     Dates: start: 20070705
  2. XIGRIS [Suspect]
     Dosage: 20 MG, UNK
     Route: 042
     Dates: start: 20070705

REACTIONS (1)
  - DEATH [None]
